FAERS Safety Report 7166752-5 (Version None)
Quarter: 2010Q4

REPORT INFORMATION
  Report Type: 
  Country: None (occurrence: None)
  Receive Date: 20101216
  Receipt Date: 20101208
  Transmission Date: 20110411
  Serious: Yes (Other)
  Sender: FDA-Public Use
  Company Number: GB-ROCHE-746846

PATIENT
  Sex: Male
  Weight: 94 kg

DRUGS (3)
  1. CAPECITABINE [Suspect]
     Dosage: DATE OF LAST DOSE: 14 NOVEMBER 2010
     Route: 065
     Dates: start: 20100908
  2. EPIRUBICIN [Suspect]
     Dosage: DATE OF LAST DOSE: 11 NOVEMBER 2010
     Route: 065
     Dates: start: 20100908
  3. CISPLATIN [Suspect]
     Dosage: DATE OF LAST DOSE: 11 NOVEMBER 2010
     Route: 065
     Dates: start: 20100908

REACTIONS (1)
  - ILL-DEFINED DISORDER [None]
